FAERS Safety Report 6813363-4 (Version None)
Quarter: 2010Q3

REPORT INFORMATION
  Report Type: 
  Country: None (occurrence: None)
  Receive Date: 20100701
  Receipt Date: 20100617
  Transmission Date: 20110219
  Serious: Yes (Other)
  Sender: FDA-Public Use
  Company Number: PHHY2010US39907

PATIENT
  Age: 63 Year
  Sex: Female

DRUGS (11)
  1. GLEEVEC [Suspect]
     Dosage: UNK
     Dates: start: 20100525
  2. ATENOLOL [Concomitant]
  3. LIPITOR [Concomitant]
     Dosage: 5 MG
  4. ASPIRIN [Concomitant]
     Dosage: 81 MG (EVERY MORNING)
  5. MULTI-VITAMINS [Concomitant]
  6. CALCIUM CARBONATE [Concomitant]
     Dosage: 1000 MG
  7. VITAMIN D [Concomitant]
     Dosage: 1000 MG
  8. METAMUCIL-2 [Concomitant]
  9. TYLENOL [Concomitant]
  10. ADVIL LIQUI-GELS [Concomitant]
     Dosage: AS NEEDED
  11. ALLOPURINOL [Concomitant]
     Indication: BLOOD URIC ACID INCREASED
     Dosage: UNK
     Dates: end: 20100609

REACTIONS (13)
  - ASTHENIA [None]
  - BACK PAIN [None]
  - BLOOD URIC ACID INCREASED [None]
  - FIBROMYALGIA [None]
  - FLATULENCE [None]
  - GAIT DISTURBANCE [None]
  - HIP ARTHROPLASTY [None]
  - LIMB DISCOMFORT [None]
  - MUSCULAR WEAKNESS [None]
  - MUSCULOSKELETAL STIFFNESS [None]
  - MYALGIA [None]
  - NAUSEA [None]
  - SOMNOLENCE [None]
